FAERS Safety Report 4510828-5 (Version None)
Quarter: 2004Q4

REPORT INFORMATION
  Report Type: 
  Country: None (occurrence: None)
  Receive Date: 20041122
  Receipt Date: 20041111
  Transmission Date: 20050328
  Serious: No
  Sender: FDA-Public Use
  Company Number: GRP04000215

PATIENT
  Age: 55 Year
  Sex: Female
  Weight: 93.5 kg

DRUGS (1)
  1. ACTONEL [Suspect]
     Dosage: ORAL
     Route: 048

REACTIONS (4)
  - ABDOMINAL PAIN UPPER [None]
  - BACK PAIN [None]
  - GASTROINTESTINAL DISORDER [None]
  - MUSCLE CRAMP [None]
